FAERS Safety Report 25978945 (Version 2)
Quarter: 2025Q4

REPORT INFORMATION
  Report Type: Spontaneous
  Country: US (occurrence: US)
  Receive Date: 20251030
  Receipt Date: 20251119
  Transmission Date: 20260118
  Serious: Yes (Hospitalization)
  Sender: TEVA
  Company Number: US-TEVA-VS-3384807

PATIENT
  Age: 55 Year
  Sex: Male

DRUGS (4)
  1. ATORVASTATIN [Suspect]
     Active Substance: ATORVASTATIN
     Indication: Lipid management
     Route: 065
  2. SIMVASTATIN [Interacting]
     Active Substance: SIMVASTATIN
     Indication: Lipid management
     Route: 065
  3. SIMVASTATIN [Interacting]
     Active Substance: SIMVASTATIN
     Indication: Lipid management
     Route: 065
  4. LISINOPRIL [Interacting]
     Active Substance: LISINOPRIL
     Indication: Product used for unknown indication
     Route: 065

REACTIONS (4)
  - Drug interaction [Unknown]
  - Angioedema [Recovered/Resolved]
  - Accidental overdose [Unknown]
  - Extra dose administered [Unknown]
